FAERS Safety Report 4335073-8 (Version None)
Quarter: 2004Q2

REPORT INFORMATION
  Report Type: 
  Country: None (occurrence: None)
  Receive Date: 20040405
  Receipt Date: 20040325
  Transmission Date: 20050107
  Serious: Yes (Hospitalization)
  Sender: FDA-Public Use
  Company Number: STA-AE-04-MTX-117

PATIENT
  Age: 58 Year
  Sex: Male

DRUGS (3)
  1. METHOTREXATE [Suspect]
     Indication: RHEUMATOID ARTHRITIS
     Dosage: 5 MG 1X PER 1 WK ORAL
     Route: 048
     Dates: start: 20030826, end: 20040121
  2. REMICADE [Suspect]
     Indication: RHEUMATOID ARTHRITIS
     Dosage: 230 MG 4X PER 1 TOT
     Dates: start: 20030826, end: 20031208
  3. FOLIC ACID [Concomitant]

REACTIONS (4)
  - LYMPH NODE TUBERCULOSIS [None]
  - PLEURAL DISORDER [None]
  - PULMONARY TUBERCULOSIS [None]
  - TUBERCULOSIS [None]
